FAERS Safety Report 6811551-4 (Version None)
Quarter: 2010Q3

REPORT INFORMATION
  Report Type: 
  Country: None (occurrence: None)
  Receive Date: 20100701
  Receipt Date: 20100624
  Transmission Date: 20110219
  Serious: Yes (Hospitalization)
  Sender: FDA-Public Use
  Company Number: US-BIOGENIDEC-2010BI017462

PATIENT
  Age: 67 Year
  Sex: Male

DRUGS (1)
  1. TYSABRI [Suspect]
     Indication: MULTIPLE SCLEROSIS
     Route: 042
     Dates: start: 20090224

REACTIONS (6)
  - ESCHERICHIA URINARY TRACT INFECTION [None]
  - MALAISE [None]
  - PULMONARY CONGESTION [None]
  - PULMONARY OEDEMA [None]
  - UROSEPSIS [None]
  - VISION BLURRED [None]
